FAERS Safety Report 22996323 (Version 2)
Quarter: 2023Q4

REPORT INFORMATION
  Report Type: Report from Study
  Country: CA (occurrence: CA)
  Receive Date: 20230928
  Receipt Date: 20231025
  Transmission Date: 20240110
  Serious: Yes (Hospitalization, Other)
  Sender: FDA-Public Use
  Company Number: CA-JNJFOC-20230956969

PATIENT
  Age: 15 Year
  Sex: Female

DRUGS (2)
  1. REMICADE [Suspect]
     Active Substance: INFLIXIMAB
     Indication: Crohn^s disease
     Route: 041
     Dates: start: 20200905
  2. IRON [Concomitant]
     Active Substance: IRON
     Indication: Product used for unknown indication
     Dosage: WHILE ADMITTED SHE HAD AN IRON INFUSION WHICH SHE REQUIRES ROUTINELY.
     Route: 065

REACTIONS (5)
  - Salmonellosis [Recovering/Resolving]
  - Anal abscess [Recovering/Resolving]
  - Syncope [Recovering/Resolving]
  - Mineral supplementation [Unknown]
  - Rectal haemorrhage [Recovered/Resolved]

NARRATIVE: CASE EVENT DATE: 20230801
